FAERS Safety Report 4990534-3 (Version None)
Quarter: 2006Q1

REPORT INFORMATION
  Report Type: 
  Country: None (occurrence: None)
  Receive Date: 20060309
  Receipt Date: 20050419
  Transmission Date: 20060701
  Serious: Yes (Other)
  Sender: FDA-Public Use
  Company Number: 399463

PATIENT
  Sex: Female
  Weight: 3 kg

DRUGS (3)
  1. ISOTRETINOIN [Suspect]
     Indication: ACNE
     Dosage: 40 MG DAILY ORAL
     Route: 048
     Dates: start: 20031215, end: 20040715
  2. HYDROCHLOROTHIAZIDE [Concomitant]
  3. CAPTOPRIL [Concomitant]

REACTIONS (1)
  - NORMAL NEWBORN [None]
